FAERS Safety Report 15656380 (Version 1)
Quarter: 2018Q4

REPORT INFORMATION
  Report Type: Spontaneous
  Country: MX (occurrence: MX)
  Receive Date: 20181126
  Receipt Date: 20181126
  Transmission Date: 20190205
  Serious: Yes (Other)
  Sender: FDA-Public Use
  Company Number: MX-PFIZER INC-2018482537

PATIENT
  Age: 73 Year
  Sex: Male

DRUGS (1)
  1. SUTENT [Suspect]
     Active Substance: SUNITINIB MALATE
     Dosage: UNK
     Dates: start: 201806

REACTIONS (7)
  - Gastritis erosive [Unknown]
  - Haematemesis [Unknown]
  - Skin ulcer [Unknown]
  - Pyoderma gangrenosum [Unknown]
  - Hypertension [Unknown]
  - Palmar-plantar erythrodysaesthesia syndrome [Unknown]
  - Skin necrosis [Unknown]

NARRATIVE: CASE EVENT DATE: 201811
